FAERS Safety Report 4526660-2 (Version None)
Quarter: 2004Q4

REPORT INFORMATION
  Report Type: 
  Country: None (occurrence: None)
  Receive Date: 20041214
  Receipt Date: 20041022
  Transmission Date: 20050328
  Serious: Yes (Hospitalization)
  Sender: FDA-Public Use
  Company Number: JP-GLAXOSMITHKLINE-B0349429A

PATIENT
  Age: 56 Year
  Sex: Female
  Weight: 57 kg

DRUGS (9)
  1. PAXIL [Suspect]
     Indication: DEPRESSIVE SYMPTOM
     Route: 048
     Dates: start: 20040401
  2. DOGMATYL [Suspect]
     Indication: DEPRESSION
     Dosage: 50MG THREE TIMES PER DAY
     Route: 048
     Dates: start: 20040401, end: 20041013
  3. LEXOTAN [Suspect]
     Indication: DEPRESSION
     Dosage: 2MG THREE TIMES PER DAY
     Route: 048
     Dates: start: 20040401, end: 20041013
  4. TETRAMIDE [Suspect]
     Indication: DEPRESSION
     Dosage: 13.33MG THREE TIMES PER DAY
     Route: 048
     Dates: start: 20040401, end: 20041013
  5. DEPAS [Suspect]
     Indication: DEPRESSION
     Dosage: .5MG PER DAY
     Route: 048
     Dates: start: 20040401, end: 20041013
  6. GLIMICRON [Concomitant]
     Indication: DIABETES MELLITUS NON-INSULIN-DEPENDENT
     Route: 048
     Dates: start: 20020729
  7. HIRNAMIN [Concomitant]
     Route: 048
  8. MEILAX [Concomitant]
     Route: 048
  9. THYRADIN S [Concomitant]
     Route: 048
     Dates: start: 20041009

REACTIONS (8)
  - BLOOD CHOLESTEROL INCREASED [None]
  - BLOOD TRIGLYCERIDES INCREASED [None]
  - DECREASED APPETITE [None]
  - DISCOMFORT [None]
  - GOITRE [None]
  - HEART VALVE CALCIFICATION [None]
  - HYPERPROLACTINAEMIA [None]
  - SECONDARY HYPOTHYROIDISM [None]
